FAERS Safety Report 8205222-X (Version None)
Quarter: 2012Q1

REPORT INFORMATION
  Report Type: 
  Country: None (occurrence: None)
  Receive Date: 20120313
  Receipt Date: 20120301
  Transmission Date: 20120608
  Serious: Yes (Hospitalization)
  Sender: FDA-Public Use
  Company Number: DE-ROCHE-1045077

PATIENT
  Sex: Female
  Weight: 83 kg

DRUGS (6)
  1. LEVOTHYROXINE SODIUM [Concomitant]
     Indication: HYPOTHYROIDISM
     Route: 048
  2. METOCLOPRAMIDE [Concomitant]
     Indication: BONE PAIN
     Route: 048
  3. PACLITAXEL [Suspect]
     Indication: BREAST CANCER METASTATIC
     Route: 042
     Dates: start: 20100810
  4. TRANSTEC PRO [Concomitant]
     Indication: BONE PAIN
     Route: 062
  5. AVASTIN [Suspect]
     Indication: BREAST CANCER METASTATIC
     Route: 042
     Dates: start: 20100810
  6. ZOLEDRONIC [Concomitant]
     Indication: BREAST CANCER METASTATIC
     Route: 042
     Dates: start: 20100818

REACTIONS (3)
  - UPPER RESPIRATORY TRACT INFECTION [None]
  - DISORIENTATION [None]
  - ASTHENIA [None]
